FAERS Safety Report 5687247-1 (Version None)
Quarter: 2008Q1

REPORT INFORMATION
  Report Type: 
  Country: None (occurrence: None)
  Receive Date: 20080328
  Receipt Date: 20070515
  Transmission Date: 20080703
  Serious: Yes (Other)
  Sender: FDA-Public Use
  Company Number: US-BAYER-US-2007-013353

PATIENT
  Age: 23 Year
  Sex: Female
  Weight: 61 kg

DRUGS (2)
  1. MIRENA [Suspect]
     Indication: CONTRACEPTION
     Route: 015
     Dates: start: 20061219, end: 20070428
  2. ZOLOFT [Concomitant]
     Route: 048
     Dates: start: 20070124

REACTIONS (3)
  - ABDOMINAL PAIN [None]
  - BACK PAIN [None]
  - UTERINE RUPTURE [None]
